FAERS Safety Report 6122902-0 (Version None)
Quarter: 2009Q1

REPORT INFORMATION
  Report Type: 
  Country: None (occurrence: None)
  Receive Date: 20090318
  Receipt Date: 20090312
  Transmission Date: 20090719
  Serious: Yes (Hospitalization)
  Sender: FDA-Public Use
  Company Number: US-ASTRAZENECA-2009UW06566

PATIENT
  Age: 74 Year
  Sex: Female
  Weight: 59.4 kg

DRUGS (4)
  1. SEROQUEL [Suspect]
     Indication: DEPRESSION
     Route: 048
     Dates: start: 20080301
  2. SEROQUEL [Suspect]
     Route: 048
  3. REMERON [Suspect]
  4. SYNTHROID [Concomitant]

REACTIONS (7)
  - DEPRESSION [None]
  - GINGIVAL PAIN [None]
  - ILL-DEFINED DISORDER [None]
  - NERVOUSNESS [None]
  - OVERDOSE [None]
  - TOOTHACHE [None]
  - WEIGHT DECREASED [None]
